FAERS Safety Report 23512297 (Version 3)
Quarter: 2024Q2

REPORT INFORMATION
  Report Type: Report from Study
  Country: AT (occurrence: None)
  Receive Date: 20240212
  Receipt Date: 20240405
  Transmission Date: 20240715
  Serious: Yes (Death)
  Sender: FDA-Public Use
  Company Number: 2024A032108

PATIENT
  Age: 63 Year
  Sex: Female
  Weight: 55 kg

DRUGS (48)
  1. FASLODEX [Suspect]
     Active Substance: FULVESTRANT
     Indication: Breast cancer
     Dosage: FREQ:4 WK;
     Route: 030
     Dates: start: 20201125, end: 20210110
  2. FASLODEX [Suspect]
     Active Substance: FULVESTRANT
     Indication: Breast cancer
     Dosage: FREQ:2 WK;
     Route: 030
     Dates: start: 20201020, end: 20201111
  3. CAPECITABINE [Suspect]
     Active Substance: CAPECITABINE
     Indication: Breast cancer
     Route: 048
     Dates: start: 20200326, end: 20200430
  4. CAPECITABINE [Suspect]
     Active Substance: CAPECITABINE
     Indication: Breast cancer
     Dosage: FREQ:.5 D;
     Route: 048
     Dates: start: 20200512, end: 20200519
  5. PERJETA [Suspect]
     Active Substance: PERTUZUMAB
     Indication: Breast cancer
     Dosage: 840 MG, EVERY 3 WEEKS
     Route: 042
     Dates: start: 20180719, end: 20180719
  6. PERJETA [Suspect]
     Active Substance: PERTUZUMAB
     Indication: Breast cancer
     Dosage: 420 MG, EVERY 3 WEEKS
     Route: 042
     Dates: start: 20180809, end: 20190704
  7. AROMASIN [Suspect]
     Active Substance: EXEMESTANE
     Indication: Breast cancer
     Dosage: O.D. - ONCE DAILY ;25 MG, 1X/DAY
     Route: 048
     Dates: start: 20180719, end: 20190507
  8. TYKERB [Suspect]
     Active Substance: LAPATINIB DITOSYLATE
     Indication: Breast cancer
     Dosage: 1250 MG, 1X/DAY
     Route: 048
     Dates: start: 20200326, end: 20200723
  9. TYKERB [Suspect]
     Active Substance: LAPATINIB DITOSYLATE
     Indication: Breast cancer
     Dosage: 1000 MG, 1X/DAY
     Route: 048
     Dates: start: 20200829, end: 20201022
  10. ONTRUZANT [Suspect]
     Active Substance: TRASTUZUMAB-DTTB
     Indication: Breast cancer
     Dosage: 424 MG, EVERY 3 WEEKS
     Route: 042
     Dates: start: 20201109, end: 20201109
  11. ONTRUZANT [Suspect]
     Active Substance: TRASTUZUMAB-DTTB
     Indication: Breast cancer
     Dosage: 336 MG, EVERY 3 WEEKS
     Route: 042
     Dates: start: 20181129, end: 20190516
  12. ONTRUZANT [Suspect]
     Active Substance: TRASTUZUMAB-DTTB
     Indication: Breast cancer
     Dosage: 324 MG, EVERY 3 WEEKS
     Route: 042
     Dates: start: 20190613, end: 20190704
  13. ONTRUZANT [Suspect]
     Active Substance: TRASTUZUMAB-DTTB
     Indication: Breast cancer
     Dosage: 318 MG, EVERY 3 WEEKS
     Route: 042
     Dates: start: 20201130, end: 20201221
  14. FEMARA [Suspect]
     Active Substance: LETROZOLE
     Indication: Breast cancer
     Dosage: FREQUENCY: O.D. - ONCE DAILY MOST RECENT DOSE PRIOR TO THE EVENT: 12/MAY/2020
     Route: 048
     Dates: start: 20190508, end: 20190819
  15. FEMARA [Suspect]
     Active Substance: LETROZOLE
     Indication: Breast cancer
     Dosage: 2.5 MG, 1X/DAY
     Route: 048
     Dates: start: 20200512, end: 20201022
  16. NAVELBINE [Suspect]
     Active Substance: VINORELBINE TARTRATE
     Indication: Breast cancer
     Dosage: 50 MG
     Route: 048
     Dates: start: 20180719, end: 20181130
  17. NAVELBINE [Suspect]
     Active Substance: VINORELBINE TARTRATE
     Indication: Breast cancer
     Dosage: 50 MG
     Route: 048
     Dates: start: 20181210, end: 20190206
  18. NAVELBINE [Suspect]
     Active Substance: VINORELBINE TARTRATE
     Indication: Breast cancer
     Dosage: 50 MG, EVERY 3 WEEKS
     Route: 048
     Dates: start: 20190206, end: 20190705
  19. KADCYLA [Suspect]
     Active Substance: ADO-TRASTUZUMAB EMTANSINE
     Indication: Breast cancer
     Dosage: 143.1 MG, EVERY 3 WEEKS
     Route: 042
     Dates: start: 20191003, end: 20200213
  20. KADCYLA [Suspect]
     Active Substance: ADO-TRASTUZUMAB EMTANSINE
     Indication: Breast cancer
     Dosage: 201.6 MG, EVERY 3 WEEKS
     Route: 042
     Dates: start: 20190829, end: 20190829
  21. HERCEPTIN [Suspect]
     Active Substance: TRASTUZUMAB
     Indication: Breast cancer
     Dosage: 330 MG, EVERY 3 WEEKS
     Route: 042
     Dates: start: 20180809, end: 20180809
  22. HERCEPTIN [Suspect]
     Active Substance: TRASTUZUMAB
     Indication: Breast cancer
     Dosage: 336 MG, EVERY 3 WEEKS
     Route: 042
     Dates: start: 20180830, end: 20181105
  23. HERCEPTIN [Suspect]
     Active Substance: TRASTUZUMAB
     Indication: Breast cancer
     Dosage: 440 MG, EVERY 3 WEEKS
     Route: 042
     Dates: start: 20180719, end: 20180719
  24. ABEMACICLIB [Suspect]
     Active Substance: ABEMACICLIB
     Indication: Breast cancer
     Dosage: FREQ:.5 D;
     Route: 048
     Dates: start: 20201029, end: 20201211
  25. HYDROMORPHONE HYDROCHLORIDE [Concomitant]
     Active Substance: HYDROMORPHONE HYDROCHLORIDE
     Dates: start: 20180727
  26. DEXABENE [Concomitant]
  27. IMODIUM [Concomitant]
     Active Substance: LOPERAMIDE HYDROCHLORIDE
     Indication: Diarrhoea
     Dates: start: 20180731
  28. ORNITHINE ASPARTATE [Concomitant]
     Active Substance: ORNITHINE ASPARTATE
  29. HALDOL [Concomitant]
     Active Substance: HALOPERIDOL
  30. DEXPANTHENOL [Concomitant]
     Active Substance: DEXPANTHENOL
     Indication: Conjunctivitis
     Dates: start: 20190221
  31. ESOMEPRAZOLE [Concomitant]
     Active Substance: ESOMEPRAZOLE
     Indication: Dysphagia
     Dates: start: 20200207
  32. KYTRIL [Concomitant]
     Active Substance: GRANISETRON HYDROCHLORIDE
  33. MORPHINE [Concomitant]
     Active Substance: MORPHINE
  34. PREDNISOLONE [Concomitant]
     Active Substance: PREDNISOLONE
  35. SUCRALFATE/HYDROTALCITE/ATRACTYLODES LANCEA/MAGNOLIA SPP./ALUMINIUM MA [Concomitant]
     Indication: Abdominal pain
     Dates: start: 20200512
  36. SUCRALFATE/HYDROTALCITE/ATRACTYLODES LANCEA/MAGNOLIA SPP./ALUMINIUM MA [Concomitant]
     Indication: Abdominal pain
  37. VERTIROSAN [Concomitant]
     Indication: Vertigo
     Dates: start: 20191218
  38. EUTHYROX [Concomitant]
     Active Substance: LEVOTHYROXINE SODIUM
  39. KONAKION [Concomitant]
     Active Substance: PHYTONADIONE
  40. XGEVA [Concomitant]
     Active Substance: DENOSUMAB
     Dates: start: 20181215
  41. RANITIDINE HYDROCHLORIDE [Concomitant]
     Active Substance: RANITIDINE HYDROCHLORIDE
  42. MAGNESIUM SUCCINATE/METHYLTHIONINIUM/METHYLTHIONINIUM CHLORIDE/PYRIDOX [Concomitant]
     Dates: start: 20190819
  43. AMOXICILLIN\CLAVULANATE POTASSIUM [Concomitant]
     Active Substance: AMOXICILLIN\CLAVULANATE POTASSIUM
  44. DEXAMETHASONE [Concomitant]
     Active Substance: DEXAMETHASONE
     Indication: Vertigo
     Dates: start: 20191114
  45. NOVALGIN [Concomitant]
     Dates: start: 20180727
  46. ALLANTOIN/NEOMYCIN SULFATE/DIPHENHYDRAMINE HYDROCHLORIDE/DIPOTASSIUM G [Concomitant]
     Dates: start: 20180719
  47. DIMETHINDENE [Concomitant]
     Active Substance: DIMETHINDENE
  48. ZOFRAN [Concomitant]
     Active Substance: ONDANSETRON HYDROCHLORIDE
     Indication: Nausea
     Dates: start: 20190919

REACTIONS (1)
  - Hepatic failure [Fatal]

NARRATIVE: CASE EVENT DATE: 20201130
